FAERS Safety Report 7366144-X (Version None)
Quarter: 2011Q1

REPORT INFORMATION
  Report Type: 
  Country: None (occurrence: None)
  Receive Date: 20110225
  Receipt Date: 20101207
  Transmission Date: 20110831
  Serious: No
  Sender: FDA-Public Use
  Company Number: 320085

PATIENT
  Age: 51 Year
  Sex: Female

DRUGS (1)
  1. VICTOZA [Suspect]
     Indication: TYPE 2 DIABETES MELLITUS
     Dosage: SLIDING SCALE, SUBCUTANEOUS
     Route: 058

REACTIONS (5)
  - HYPOGLYCAEMIA [None]
  - VOMITING [None]
  - ABDOMINAL PAIN [None]
  - DRUG INEFFECTIVE [None]
  - DRUG INTOLERANCE [None]
